FAERS Safety Report 8996542 (Version 2)
Quarter: 2013Q1

REPORT INFORMATION
  Report Type: Spontaneous
  Country: US (occurrence: US)
  Receive Date: 20130104
  Receipt Date: 20130109
  Transmission Date: 20140127
  Serious: No
  Sender: FDA-Public Use
  Company Number: US-PFIZER INC-2013002382

PATIENT
  Age: 45 Year
  Sex: Female
  Weight: 52.61 kg

DRUGS (2)
  1. ZOLPIDEM TARTRATE [Suspect]
     Indication: INSOMNIA
     Dosage: 10 MG, 1X/DAY
     Route: 048
     Dates: start: 20121206
  2. XANAX [Concomitant]
     Dosage: 1 MG, UNK
     Route: 065

REACTIONS (2)
  - Malabsorption [Unknown]
  - Drug ineffective [Not Recovered/Not Resolved]
